FAERS Safety Report 15710348 (Version 1)
Quarter: 2018Q4

REPORT INFORMATION
  Report Type: Spontaneous
  Country: GB (occurrence: GB)
  Receive Date: 20181211
  Receipt Date: 20181211
  Transmission Date: 20190205
  Serious: Yes (Hospitalization)
  Sender: FDA-Public Use
  Company Number: GB-BECTON DICKINSON-2018BDN00436

PATIENT
  Age: 40 Year
  Sex: Male

DRUGS (1)
  1. CHLORAPREP WITH TINT [Suspect]
     Active Substance: CHLORHEXIDINE GLUCONATE\ISOPROPYL ALCOHOL
     Indication: ANTIBIOTIC PROPHYLAXIS
     Dosage: UNK
     Route: 061
     Dates: start: 201708

REACTIONS (6)
  - Rash pruritic [Recovered/Resolved]
  - Hypersensitivity [Recovered/Resolved]
  - Application site erythema [Recovered/Resolved]
  - Rash papular [Recovered/Resolved]
  - Application site rash [Recovered/Resolved]
  - Superinfection bacterial [Recovered/Resolved]

NARRATIVE: CASE EVENT DATE: 201708
